FAERS Safety Report 9384521 (Version 1)
Quarter: 2013Q3

REPORT INFORMATION
  Report Type: Report from Study
  Country: DE (occurrence: DE)
  Receive Date: 20130705
  Receipt Date: 20130705
  Transmission Date: 20140515
  Serious: Yes (Hospitalization)
  Sender: FDA-Public Use
  Company Number: DE-ROCHE-1244600

PATIENT
  Sex: Female
  Weight: 80 kg

DRUGS (1)
  1. TRASTUZUMAB [Suspect]
     Indication: BREAST CANCER
     Dosage: LAST DOSE RECEIVED ON 06/DEC/2012
     Route: 065
     Dates: start: 20121025, end: 20121206

REACTIONS (1)
  - Skin disorder [Not Recovered/Not Resolved]
